FAERS Safety Report 11100628 (Version 2)
Quarter: 2015Q2

REPORT INFORMATION
  Report Type: Spontaneous
  Country: US (occurrence: None)
  Receive Date: 20150506
  Receipt Date: 20150520
  Transmission Date: 20150821
  Serious: Yes (Other)
  Sender: FDA-Public Use
  Company Number: US-H14001-15-00642

PATIENT
  Age: 66 Year
  Sex: Male

DRUGS (5)
  1. WARFARIN [Concomitant]
     Active Substance: WARFARIN
  2. MILRINONE [Concomitant]
     Active Substance: MILRINONE
  3. ASPIRIN (ACETYLSALICYLIC ACID) [Concomitant]
     Active Substance: ASPIRIN
  4. AMIODARONE (AMIODARONE) (UNKNOWN) (AMIODARONE) [Suspect]
     Active Substance: AMIODARONE
     Indication: PRODUCT USED FOR UNKNOWN INDICATION
  5. TORSEMIDE (TORASEMIDE) [Concomitant]

REACTIONS (4)
  - Pulmonary alveolar haemorrhage [None]
  - Toxicity to various agents [None]
  - Pulse abnormal [None]
  - Acute respiratory failure [None]
